FAERS Safety Report 4819491-7 (Version None)
Quarter: 2005Q4

REPORT INFORMATION
  Report Type: 
  Country: None (occurrence: None)
  Receive Date: 20051031
  Receipt Date: 20050624
  Transmission Date: 20060501
  Serious: No
  Sender: FDA-Public Use
  Company Number: 2005PV000116

PATIENT
  Age: 48 Year
  Sex: Male
  Weight: 131.9967 kg

DRUGS (12)
  1. SYMLIN [Suspect]
     Indication: DIABETES MELLITUS NON-INSULIN-DEPENDENT
     Dosage: 120 UG; 60 UG; TID; SC
     Route: 058
     Dates: start: 20050601, end: 20050601
  2. SYMLIN [Suspect]
     Indication: DIABETES MELLITUS NON-INSULIN-DEPENDENT
     Dosage: 120 UG; 60 UG; TID; SC
     Route: 058
     Dates: start: 20050601
  3. ASPIRIN [Concomitant]
  4. COREG [Concomitant]
  5. PLAVIX [Concomitant]
  6. CAPTOPRIL [Concomitant]
  7. NIASPAN [Concomitant]
  8. ZOCOR [Concomitant]
  9. NOVOLOG [Concomitant]
  10. LANTUS [Concomitant]
  11. METFORMIN [Concomitant]
  12. ANDROGEL [Concomitant]

REACTIONS (3)
  - DIARRHOEA [None]
  - NAUSEA [None]
  - WEIGHT DECREASED [None]
